FAERS Safety Report 10576654 (Version 1)
Quarter: 2014Q4

REPORT INFORMATION
  Report Type: Spontaneous
  Country: US (occurrence: US)
  Receive Date: 20141111
  Receipt Date: 20141111
  Transmission Date: 20150529
  Serious: No
  Sender: FDA-Public Use
  Company Number: US-TEVA-521482USA

PATIENT
  Age: 36 Year
  Sex: Female
  Weight: 66.74 kg

DRUGS (1)
  1. PARAGARD T380A [Suspect]
     Active Substance: COPPER
     Indication: CONTRACEPTION
     Route: 015
     Dates: start: 20141001, end: 20141106

REACTIONS (4)
  - Vulvovaginal pruritus [Recovered/Resolved]
  - Vaginal discharge [Recovered/Resolved]
  - Bacterial vaginosis [Recovered/Resolved]
  - Device expulsion [Recovered/Resolved]

NARRATIVE: CASE EVENT DATE: 20141030
